FAERS Safety Report 19687312 (Version 5)
Quarter: 2024Q1

REPORT INFORMATION
  Report Type: Spontaneous
  Country: US (occurrence: US)
  Receive Date: 20210811
  Receipt Date: 20240228
  Transmission Date: 20240410
  Serious: No
  Sender: FDA-Public Use
  Company Number: US-PFIZER INC-2021442396

PATIENT
  Age: 50 Year
  Sex: Female

DRUGS (15)
  1. IBRANCE [Suspect]
     Active Substance: PALBOCICLIB
     Indication: Breast cancer
     Dosage: 1 CAP DAILY FOR 21 DAYS ON, 7 DAYS OFF
     Route: 048
     Dates: start: 20161213
  2. IBRANCE [Suspect]
     Active Substance: PALBOCICLIB
     Dosage: UNK
     Dates: start: 20190730
  3. IBRANCE [Suspect]
     Active Substance: PALBOCICLIB
     Dosage: ONE CAPSULE ONCE A DAY FOR 21 DAYS THEN 7 DAYS OFF
     Route: 048
     Dates: start: 202012
  4. IBRANCE [Suspect]
     Active Substance: PALBOCICLIB
     Dosage: 100 MG
     Route: 048
     Dates: start: 20220711
  5. LETROZOLE [Concomitant]
     Active Substance: LETROZOLE
  6. FISH OIL [Concomitant]
     Active Substance: FISH OIL
  7. CALCIUM\VITAMIN D [Concomitant]
     Active Substance: CALCIUM\VITAMIN D
  8. RAMIPRIL [Concomitant]
     Active Substance: RAMIPRIL
  9. IBUPROFEN [Concomitant]
     Active Substance: IBUPROFEN
  10. CRANBERRY [Concomitant]
     Active Substance: CRANBERRY
  11. ASPIRIN [Concomitant]
     Active Substance: ASPIRIN
  12. XGEVA [Concomitant]
     Active Substance: DENOSUMAB
     Dosage: 120 MG/1.7 ML INJ. 1.7 ML
  13. ESTRACE [Concomitant]
     Active Substance: ESTRADIOL
  14. GOSERELIN [Concomitant]
     Active Substance: GOSERELIN
     Dosage: IMPLANT SYRING
  15. METOPROLOL [Concomitant]
     Active Substance: METOPROLOL
     Dosage: ER

REACTIONS (9)
  - Alopecia [Unknown]
  - White blood cell count decreased [Recovering/Resolving]
  - Stomatitis [Unknown]
  - Constipation [Unknown]
  - Faeces soft [Unknown]
  - Diarrhoea [Unknown]
  - Fatigue [Unknown]
  - Influenza [Unknown]
  - COVID-19 [Unknown]
